FAERS Safety Report 10005497 (Version 2)
Quarter: 2014Q1

REPORT INFORMATION
  Report Type: Spontaneous
  Country: US (occurrence: US)
  Receive Date: 20140312
  Receipt Date: 20140312
  Transmission Date: 20141002
  Serious: Yes (Disabling)
  Sender: FDA-Public Use
  Company Number: US-GE HEALTHCARE MEDICAL DIAGNOSTICS-OSCN-PR-0806S-0345

PATIENT
  Age: 26 Year
  Sex: Female
  Weight: 33.4 kg

DRUGS (12)
  1. OMNISCAN [Suspect]
     Indication: CONVULSION
     Route: 042
     Dates: start: 19990921, end: 19990921
  2. OMNISCAN [Suspect]
     Indication: PRODUCT USED FOR UNKNOWN INDICATION
     Route: 042
     Dates: start: 20050822, end: 20050822
  3. OMNISCAN [Suspect]
     Indication: PRODUCT USED FOR UNKNOWN INDICATION
     Route: 042
     Dates: start: 20050906, end: 20050906
  4. MAGNEVIST [Suspect]
     Indication: CONVULSION
     Route: 042
     Dates: start: 20040105, end: 20040105
  5. MAGNEVIST [Suspect]
     Indication: PYREXIA
     Route: 042
     Dates: start: 20000121, end: 20000121
  6. MAGNEVIST [Suspect]
     Indication: ABSCESS DRAINAGE
     Route: 042
     Dates: start: 20040125, end: 20040125
  7. MAGNEVIST [Suspect]
     Indication: RENAL FAILURE CHRONIC
     Route: 042
     Dates: start: 20040205, end: 20040205
  8. MAGNEVIST [Suspect]
     Route: 042
     Dates: start: 20040428, end: 20040428
  9. OPTIRAY [Concomitant]
  10. OMNIPAQUE 350 [Concomitant]
  11. EPOGEN [Concomitant]
  12. MINOXIDIL [Concomitant]

REACTIONS (1)
  - Nephrogenic systemic fibrosis [Not Recovered/Not Resolved]
